FAERS Safety Report 19461363 (Version 1)
Quarter: 2021Q2

REPORT INFORMATION
  Report Type: Other
  Country: FR (occurrence: FR)
  Receive Date: 20210625
  Receipt Date: 20210625
  Transmission Date: 20210717
  Serious: Yes (Hospitalization, Other)
  Sender: FDA-Public Use
  Company Number: FR-APOTEX-2021AP014877

PATIENT
  Age: 29 Year
  Sex: Female

DRUGS (4)
  1. IMOVANE [Concomitant]
     Active Substance: ZOPICLONE
     Indication: PRODUCT USED FOR UNKNOWN INDICATION
     Dosage: 7.5 MILLIGRAM, QD
     Route: 048
  2. LEVOTHYROX [Concomitant]
     Active Substance: LEVOTHYROXINE
     Indication: PRODUCT USED FOR UNKNOWN INDICATION
     Dosage: 100 MICROGRAM, QD
     Route: 048
  3. PAROXETINE HYDROCHLORIDE. [Suspect]
     Active Substance: PAROXETINE HYDROCHLORIDE
     Indication: MIXED ANXIETY AND DEPRESSIVE DISORDER
     Dosage: UNK, (UNSPECIFIED)
     Route: 048
     Dates: start: 202101, end: 20210119
  4. ALPRAZOLAM. [Concomitant]
     Active Substance: ALPRAZOLAM
     Indication: PRODUCT USED FOR UNKNOWN INDICATION
     Dosage: 1.5 MILLIGRAM, QD
     Route: 048

REACTIONS (5)
  - Confusional state [Recovered/Resolved]
  - Depersonalisation/derealisation disorder [Recovered/Resolved]
  - Panic attack [Recovered/Resolved]
  - Hallucination [Recovered/Resolved]
  - Psychiatric decompensation [Recovered/Resolved]

NARRATIVE: CASE EVENT DATE: 202101
